FAERS Safety Report 20062061 (Version 1)
Quarter: 2021Q4

REPORT INFORMATION
  Report Type: Spontaneous
  Country: FR (occurrence: FR)
  Receive Date: 20211112
  Receipt Date: 20211112
  Transmission Date: 20220304
  Serious: Yes (Hospitalization, Other)
  Sender: FDA-Public Use
  Company Number: FR-FERRINGPH-2021FE06294

PATIENT
  Age: 11 Year
  Sex: Male

DRUGS (5)
  1. DESMOPRESSIN ACETATE [Suspect]
     Active Substance: DESMOPRESSIN ACETATE
     Indication: Diabetes insipidus
     Dosage: UNK
     Route: 065
  2. DESMOPRESSIN ACETATE [Suspect]
     Active Substance: DESMOPRESSIN ACETATE
     Indication: Diabetes insipidus
     Dosage: 180 UG
     Route: 065
     Dates: start: 20211009
  3. DESMOPRESSIN ACETATE [Suspect]
     Active Substance: DESMOPRESSIN ACETATE
     Dosage: 240 UG
     Route: 065
     Dates: start: 20211008, end: 20211008
  4. DESMOPRESSIN ACETATE [Suspect]
     Active Substance: DESMOPRESSIN ACETATE
     Dosage: 120 UG
     Route: 065
     Dates: start: 20210928, end: 20211007
  5. DESMOPRESSIN ACETATE [Suspect]
     Active Substance: DESMOPRESSIN ACETATE
     Dosage: 1 DF, DAILY
     Route: 065
     Dates: start: 20210922, end: 20210927

REACTIONS (5)
  - Subdural haematoma [Unknown]
  - Craniopharyngioma [Unknown]
  - Therapeutic product effect variable [Recovered/Resolved]
  - Product substitution issue [Recovered/Resolved]
  - Product preparation issue [Recovered/Resolved]
